FAERS Safety Report 5120143-7 (Version None)
Quarter: 2006Q4

REPORT INFORMATION
  Report Type: 
  Country: None (occurrence: None)
  Receive Date: 20061002
  Receipt Date: 20061002
  Transmission Date: 20070319
  Serious: Yes (Other)
  Sender: FDA-Public Use
  Company Number: None

PATIENT
  Sex: Male
  Weight: 108.8633 kg

DRUGS (1)
  1. ELIDEL [Suspect]
     Indication: ERYTHEMA
     Dosage: SMALL DAILY
     Dates: start: 20030603, end: 20030701

REACTIONS (4)
  - LACRIMAL DISORDER [None]
  - SINUSITIS [None]
  - TOOTH DISORDER [None]
  - TOOTHACHE [None]
